FAERS Safety Report 22651309 (Version 1)
Quarter: 2023Q2

REPORT INFORMATION
  Report Type: Spontaneous
  Country: DE (occurrence: DE)
  Receive Date: 20230628
  Receipt Date: 20230628
  Transmission Date: 20230722
  Serious: Yes (Other)
  Sender: FDA-Public Use
  Company Number: DE-PFIZER INC-PV202300111388

PATIENT
  Sex: Female

DRUGS (1)
  1. GEMTUZUMAB OZOGAMICIN [Suspect]
     Active Substance: GEMTUZUMAB OZOGAMICIN
     Indication: Acute myeloid leukaemia
     Dosage: UNK

REACTIONS (3)
  - Venoocclusive liver disease [Unknown]
  - Hepatitis E [Unknown]
  - Neoplasm recurrence [Unknown]
